FAERS Safety Report 10640651 (Version 1)
Quarter: 2014Q4

REPORT INFORMATION
  Report Type: Spontaneous
  Country: AU (occurrence: AU)
  Receive Date: 20141209
  Receipt Date: 20141209
  Transmission Date: 20150529
  Serious: Yes (Hospitalization)
  Sender: FDA-Public Use
  Company Number: PHHY2014AU155403

PATIENT
  Sex: Male

DRUGS (4)
  1. CLOZAPINE. [Suspect]
     Active Substance: CLOZAPINE
     Indication: DISTURBANCE IN ATTENTION
  2. SERTRALINE [Suspect]
     Active Substance: SERTRALINE HYDROCHLORIDE
     Indication: DISTURBANCE IN ATTENTION
  3. CLOZAPINE. [Suspect]
     Active Substance: CLOZAPINE
     Indication: OBSESSIVE-COMPULSIVE DISORDER
     Dosage: 200 MG, QD
     Route: 065
  4. SERTRALINE [Suspect]
     Active Substance: SERTRALINE HYDROCHLORIDE
     Indication: OBSESSIVE-COMPULSIVE DISORDER
     Dosage: 1 DF, QD
     Route: 065

REACTIONS (13)
  - Schizophrenia, paranoid type [Unknown]
  - Delusion [Unknown]
  - Abnormal behaviour [Unknown]
  - Nasal septum deviation [Unknown]
  - Blunted affect [Unknown]
  - Hallucination, auditory [Unknown]
  - Stereotypy [Unknown]
  - Nasal congestion [Unknown]
  - Sensory disturbance [Unknown]
  - Rhinorrhoea [Unknown]
  - Suspiciousness [Unknown]
  - Decreased eye contact [Unknown]
  - Nasal turbinate hypertrophy [Unknown]
